APPROVED DRUG PRODUCT: TENOFOVIR DISOPROXIL FUMARATE
Active Ingredient: TENOFOVIR DISOPROXIL FUMARATE
Strength: 300MG
Dosage Form/Route: TABLET;ORAL
Application: A091612 | Product #001 | TE Code: AB
Applicant: TEVA PHARMACEUTICALS USA
Approved: Mar 18, 2015 | RLD: No | RS: No | Type: RX